FAERS Safety Report 5097162-2 (Version None)
Quarter: 2006Q3

REPORT INFORMATION
  Report Type: 
  Country: None (occurrence: None)
  Receive Date: 20060901
  Receipt Date: 20060823
  Transmission Date: 20061208
  Serious: Yes (Hospitalization)
  Sender: FDA-Public Use
  Company Number: 14650

PATIENT
  Age: 58 Year
  Sex: Female

DRUGS (7)
  1. CYTARABINE [Suspect]
     Indication: MANTLE CELL LYMPHOMA STAGE IV
  2. DEXAMETHASONE TAB [Suspect]
     Indication: MANTLE CELL LYMPHOMA STAGE IV
  3. DOXORUBICIN [Suspect]
     Indication: MANTLE CELL LYMPHOMA STAGE IV
  4. METHOTREXATE [Suspect]
     Indication: MANTLE CELL LYMPHOMA STAGE IV
  5. VINCRISTINE [Suspect]
     Indication: MANTLE CELL LYMPHOMA STAGE IV
  6. CYCLOPHOSPHAMIDE [Suspect]
     Indication: MANTLE CELL LYMPHOMA STAGE IV
  7. RITUXIMAB [Suspect]
     Indication: MANTLE CELL LYMPHOMA STAGE IV

REACTIONS (9)
  - CARDIOMEGALY [None]
  - DEEP VEIN THROMBOSIS [None]
  - ELECTROCARDIOGRAM ST-T CHANGE [None]
  - EMBOLISM VENOUS [None]
  - HAEMATOCRIT DECREASED [None]
  - LOBAR PNEUMONIA [None]
  - PLATELET COUNT DECREASED [None]
  - PULMONARY EMBOLISM [None]
  - REFUSAL OF TREATMENT BY PATIENT [None]
